FAERS Safety Report 4454616-7 (Version None)
Quarter: 2004Q3

REPORT INFORMATION
  Report Type: 
  Country: None (occurrence: None)
  Receive Date: 20040826
  Receipt Date: 20040305
  Transmission Date: 20050211
  Serious: Yes (Hospitalization, Other)
  Sender: FDA-Public Use
  Company Number: 234517

PATIENT
  Age: 80 Year
  Sex: Male
  Weight: 68 kg

DRUGS (5)
  1. NOVOLIN N INNOLET (INSULIN HUMAN) SUSPENSION FOR INJECTION, 100IU/ML [Suspect]
     Indication: INSULIN-REQUIRING TYPE II DIABETES MELLITUS
     Dosage: 25 IU, QD, SUBCUTANEOUS
     Route: 058
  2. NOVOLIN RINNOLET (INSULIN HUMAN) SOLUTION FOR INJECTION [Concomitant]
  3. TOPROL-XL [Concomitant]
  4. LOTENSIN [Concomitant]
  5. DIGITEX (DIGOXIN) [Concomitant]

REACTIONS (1)
  - BLOOD GLUCOSE INCREASED [None]
